FAERS Safety Report 9163236 (Version 1)
Quarter: 2013Q1

REPORT INFORMATION
  Report Type: Report from Study
  Country: FR (occurrence: FR)
  Receive Date: 20130314
  Receipt Date: 20130314
  Transmission Date: 20140127
  Serious: Yes (Hospitalization)
  Sender: FDA-Public Use
  Company Number: FR-ROCHE-1199494

PATIENT
  Age: 56 Year
  Sex: Female
  Weight: 62 kg

DRUGS (12)
  1. TOCILIZUMAB [Suspect]
     Indication: RHEUMATOID ARTHRITIS
     Route: 041
     Dates: start: 20120229
  2. TOCILIZUMAB [Suspect]
     Route: 041
     Dates: start: 20120627
  3. TOCILIZUMAB [Suspect]
     Route: 041
     Dates: start: 20120801
  4. TOCILIZUMAB [Suspect]
     Route: 041
     Dates: start: 20120829
  5. CORTANCYL [Concomitant]
     Route: 065
     Dates: start: 201006
  6. CORTANCYL [Concomitant]
     Route: 065
     Dates: start: 20120229
  7. CORTANCYL [Concomitant]
     Route: 065
     Dates: start: 20120627
  8. CORTANCYL [Concomitant]
     Route: 065
     Dates: start: 20120801
  9. CORTANCYL [Concomitant]
     Route: 065
     Dates: start: 20120829
  10. METHOTREXATE [Concomitant]
     Route: 065
     Dates: start: 20120229
  11. ACTONEL [Concomitant]
     Route: 065
  12. SPECIAFOLDINE [Concomitant]
     Route: 065
     Dates: start: 20120229

REACTIONS (6)
  - Rheumatoid arthritis [Recovered/Resolved]
  - Rash pustular [Recovered/Resolved]
  - Bronchitis [Recovered/Resolved]
  - Rash maculo-papular [Recovered/Resolved]
  - Rash erythematous [Recovered/Resolved]
  - Prurigo [Recovered/Resolved]
